FAERS Safety Report 4771235-3 (Version None)
Quarter: 2005Q3

REPORT INFORMATION
  Report Type: 
  Country: None (occurrence: None)
  Receive Date: 20050912
  Receipt Date: 20050629
  Transmission Date: 20060218
  Serious: No
  Sender: FDA-Public Use
  Company Number: 2005-01401

PATIENT
  Age: 64 Year
  Sex: Female
  Weight: 44.4 kg

DRUGS (2)
  1. VELCADE [Suspect]
     Indication: MULTIPLE MYELOMA
     Dosage: 1.90 MG, 2/WEEK, INTRAVENOUS
     Route: 042
     Dates: start: 20050101
  2. DEXAMETHASONE [Concomitant]

REACTIONS (2)
  - ALANINE AMINOTRANSFERASE INCREASED [None]
  - NEUROPATHY PERIPHERAL [None]
